FAERS Safety Report 19704959 (Version 3)
Quarter: 2021Q3

REPORT INFORMATION
  Report Type: Not Available
  Country: GB (occurrence: GB)
  Receive Date: 20210816
  Receipt Date: 20210902
  Transmission Date: 20211014
  Serious: Yes (Other)
  Sender: FDA-Public Use
  Company Number: GB-SYNTHON BV-IN51PV21_60875

PATIENT
  Sex: Male

DRUGS (6)
  1. TAMSULOSIN [Suspect]
     Active Substance: TAMSULOSIN
     Indication: PROSTATIC DISORDER
     Dosage: UNK (ADDITIONAL INFO: MEDICATION ERROR, MISUSE)
     Route: 065
     Dates: start: 20180301
  2. VASRAN [Concomitant]
     Indication: BLADDER DISORDER
     Dosage: UNK
     Route: 065
     Dates: start: 20190329
  3. VASRAN [Concomitant]
     Indication: PROSTATIC DISORDER
  4. BETMIGA [Suspect]
     Active Substance: MIRABEGRON
     Indication: BLADDER DISORDER
     Dosage: UNK
     Route: 065
     Dates: start: 20200304
  5. TAMSULOSIN [Suspect]
     Active Substance: TAMSULOSIN
     Indication: BLADDER DISORDER
  6. MIRABEGRON [Suspect]
     Active Substance: MIRABEGRON
     Indication: BLADDER DISORDER
     Dosage: UNK
     Route: 065
     Dates: start: 20200304

REACTIONS (8)
  - Gait disturbance [Unknown]
  - Lethargy [Unknown]
  - Product use in unapproved indication [Unknown]
  - Drug ineffective for unapproved indication [Unknown]
  - Drug ineffective [Unknown]
  - Nocturia [Unknown]
  - Fatigue [Unknown]
  - Therapeutic product effect incomplete [Unknown]

NARRATIVE: CASE EVENT DATE: 20200304
